FAERS Safety Report 8114761-1 (Version None)
Quarter: 2012Q1

REPORT INFORMATION
  Report Type: 
  Country: None (occurrence: None)
  Receive Date: 20120202
  Receipt Date: 20120202
  Transmission Date: 20120608
  Serious: Yes (Other)
  Sender: FDA-Public Use
  Company Number: None

PATIENT
  Age: 79 Year
  Sex: Female
  Weight: 48.5349 kg

DRUGS (1)
  1. IMIQUIMOD [Suspect]
     Indication: SQUAMOUS CELL CARCINOMA
     Dosage: 5 TIMES A WEEK FOR 6 WEEKS
     Dates: start: 20111205, end: 20120113

REACTIONS (6)
  - LIP ULCERATION [None]
  - RASH [None]
  - LIP HAEMORRHAGE [None]
  - SWELLING [None]
  - MOUTH ULCERATION [None]
  - PRURITUS [None]
